FAERS Safety Report 4566456-9 (Version None)
Quarter: 2005Q1

REPORT INFORMATION
  Report Type: 
  Country: None (occurrence: None)
  Receive Date: 20050126
  Receipt Date: 20050126
  Transmission Date: 20050727
  Serious: Yes (Other)
  Sender: FDA-Public Use
  Company Number: None

PATIENT
  Age: 60 Year
  Sex: Male
  Weight: 98.8842 kg

DRUGS (3)
  1. ALBUTEROL [Suspect]
     Indication: POST POLIO SYNDROME
     Dosage: 2 PUFFS Q2-4HRS PRN
     Route: 055
     Dates: start: 19960101
  2. ALBUTEROL [Suspect]
     Indication: RESPIRATORY FAILURE
     Dosage: 2 PUFFS Q2-4HRS PRN
     Route: 055
     Dates: start: 19960101
  3. ALBUTEROL [Suspect]
     Indication: ASTHMA
     Dosage: ONE UNIT Q2HRS PRN
     Route: 055
     Dates: start: 19960101

REACTIONS (3)
  - ANXIETY [None]
  - PHARMACEUTICAL PRODUCT COMPLAINT [None]
  - THERAPEUTIC PRODUCT INEFFECTIVE [None]
